FAERS Safety Report 7082440-8 (Version None)
Quarter: 2010Q4

REPORT INFORMATION
  Report Type: 
  Country: None (occurrence: None)
  Receive Date: 20101102
  Receipt Date: 20101102
  Transmission Date: 20110411
  Serious: Yes (Hospitalization)
  Sender: FDA-Public Use
  Company Number: None

PATIENT
  Sex: Male
  Weight: 135.1 kg

DRUGS (7)
  1. VELCADE [Suspect]
     Indication: MULTIPLE MYELOMA
     Dosage: 3.4 MG 1/D1,D8 OF 28D CYCLE IV
     Route: 042
     Dates: start: 20101005
  2. VELCADE [Suspect]
     Indication: MULTIPLE MYELOMA
     Dosage: 3.4 MG 1/D1,D8 OF 28D CYCLE IV
     Route: 042
     Dates: start: 20101012
  3. FLEXERIL [Concomitant]
  4. OXYCODONE HCL [Concomitant]
  5. DILAUDID [Concomitant]
  6. LASIX [Concomitant]
  7. MIDRIN [Concomitant]

REACTIONS (8)
  - ARTHRALGIA [None]
  - CELLULITIS [None]
  - CHILLS [None]
  - FATIGUE [None]
  - MUSCULOSKELETAL STIFFNESS [None]
  - OEDEMA PERIPHERAL [None]
  - PYREXIA [None]
  - WHITE BLOOD CELL COUNT INCREASED [None]
